FAERS Safety Report 9182583 (Version 1)
Quarter: 2013Q1

REPORT INFORMATION
  Report Type: Spontaneous
  Country: PT (occurrence: PT)
  Receive Date: 20130322
  Receipt Date: 20130322
  Transmission Date: 20140127
  Serious: Yes (Life-Threatening)
  Sender: FDA-Public Use
  Company Number: PT-ROCHE-1205016

PATIENT
  Age: 46 Year
  Sex: Male

DRUGS (11)
  1. CYMEVENE [Suspect]
     Indication: CYTOMEGALOVIRUS GASTRITIS
     Dosage: 500 MG/10 ML
     Route: 042
     Dates: start: 20130306, end: 20130312
  2. TENOFOVIR DISOPROXIL FUMARATE [Concomitant]
     Indication: HIV INFECTION
     Dosage: 1 UNIT DOSE
     Route: 048
     Dates: start: 20130226, end: 20130303
  3. EMTRICITABINE [Concomitant]
     Indication: HIV INFECTION
     Route: 048
     Dates: start: 20130226, end: 20130303
  4. HYDROXYZINE [Concomitant]
     Indication: CYTOMEGALOVIRUS GASTRITIS
     Route: 048
  5. SULFAMETHOXAZOLE/TRIMETHOPRIM [Concomitant]
     Indication: CYTOMEGALOVIRUS GASTRITIS
     Route: 048
  6. IPRATROPIUM BROMIDE [Concomitant]
  7. PANTOPRAZOLE [Concomitant]
  8. CLOZAPINE [Concomitant]
  9. EFAVIRENZ [Concomitant]
     Indication: HIV INFECTION
     Route: 048
     Dates: start: 20130226, end: 20130303
  10. PREDNISOLONE [Concomitant]
  11. FOLIC ACID [Concomitant]

REACTIONS (1)
  - Rash generalised [Recovering/Resolving]
